FAERS Safety Report 4893458-5 (Version None)
Quarter: 2006Q1

REPORT INFORMATION
  Report Type: 
  Country: None (occurrence: None)
  Receive Date: 20060124
  Receipt Date: 20060113
  Transmission Date: 20060701
  Serious: Yes (Hospitalization, Other)
  Sender: FDA-Public Use
  Company Number: 2005056921

PATIENT
  Age: 40 Year
  Sex: Female
  Weight: 65.7716 kg

DRUGS (7)
  1. CELEBREX [Suspect]
     Indication: ARTHROPATHY
     Dosage: 400 MG (200 MG, 2 IN 1 D), ORAL
     Route: 048
  2. CELEBREX [Suspect]
     Indication: BACK PAIN
     Dosage: 400 MG (200 MG, 2 IN 1 D), ORAL
     Route: 048
  3. CELEBREX [Suspect]
     Indication: TENDONITIS
     Dosage: 400 MG (200 MG, 2 IN 1 D), ORAL
     Route: 048
  4. BEXTRA [Suspect]
     Indication: BACK PAIN
  5. ACETAMINOPHEN [Concomitant]
  6. SUDAFED 12 HOUR [Concomitant]
  7. DEPO-PROVERA SUSPENSION/INJ [Concomitant]

REACTIONS (6)
  - ARTHROPATHY [None]
  - BACK PAIN [None]
  - DRUG INEFFECTIVE [None]
  - INADEQUATE ANALGESIA [None]
  - KNEE OPERATION [None]
  - PHARMACEUTICAL PRODUCT COMPLAINT [None]
